FAERS Safety Report 22716701 (Version 4)
Quarter: 2023Q4

REPORT INFORMATION
  Report Type: Spontaneous
  Country: DO (occurrence: DO)
  Receive Date: 20230718
  Receipt Date: 20231106
  Transmission Date: 20240110
  Serious: No
  Sender: FDA-Public Use
  Company Number: DO-PFIZER INC-PV202300121339

PATIENT
  Age: 13 Year
  Sex: Female

DRUGS (1)
  1. GENOTROPIN [Suspect]
     Active Substance: SOMATROPIN
     Dosage: 0.7 MG, DAILY

REACTIONS (3)
  - Device physical property issue [Unknown]
  - Device information output issue [Unknown]
  - Drug dose omission by device [Unknown]
